FAERS Safety Report 9775126 (Version 1)
Quarter: 2013Q4

REPORT INFORMATION
  Report Type: Spontaneous
  Country: JP (occurrence: JP)
  Receive Date: 20131220
  Receipt Date: 20131220
  Transmission Date: 20140711
  Serious: Yes (Other)
  Sender: FDA-Public Use
  Company Number: JP-ROXANE LABORATORIES, INC.-2013-RO-01990RO

PATIENT
  Age: 73 Year
  Sex: Female
  Weight: 37 kg

DRUGS (2)
  1. METHOTREXATE [Suspect]
     Indication: RHEUMATOID ARTHRITIS
     Route: 048
  2. PREDNISOLONE [Suspect]
     Indication: RHEUMATOID ARTHRITIS

REACTIONS (4)
  - Angiocentric lymphoma [Not Recovered/Not Resolved]
  - Gastric ulcer [Unknown]
  - Cryptococcus test positive [Unknown]
  - Epstein-Barr virus infection [Unknown]
